FAERS Safety Report 5749630-5 (Version None)
Quarter: 2008Q2

REPORT INFORMATION
  Report Type: 
  Country: None (occurrence: None)
  Receive Date: 20080527
  Receipt Date: 20080516
  Transmission Date: 20081010
  Serious: Yes (Hospitalization)
  Sender: FDA-Public Use
  Company Number: US-MERCK-0805USA03953

PATIENT
  Age: 71 Year
  Sex: Female

DRUGS (20)
  1. SINGULAIR [Suspect]
     Route: 048
     Dates: start: 20070801
  2. ADVAIR DISKUS 100/50 [Suspect]
     Indication: ASTHMA
     Dates: start: 20071001
  3. ADVAIR DISKUS 100/50 [Suspect]
     Indication: CHRONIC OBSTRUCTIVE PULMONARY DISEASE
     Dates: start: 20071001
  4. SEREVENT [Suspect]
     Indication: ASTHMA
     Dates: start: 20070801, end: 20070922
  5. SANCTURA [Suspect]
     Route: 065
     Dates: start: 20080401, end: 20080506
  6. AMOXICILLIN [Concomitant]
     Route: 065
  7. ATIVAN [Concomitant]
     Route: 065
  8. PROVENTIL [Concomitant]
     Route: 065
  9. PROTONIX [Concomitant]
     Route: 065
  10. COZAAR [Concomitant]
     Route: 065
  11. JANUMET [Concomitant]
     Route: 065
  12. NASONEX [Concomitant]
     Route: 065
  13. CLARINEX [Concomitant]
     Route: 065
  14. NORVASC [Concomitant]
     Route: 065
  15. VYTORIN [Concomitant]
     Route: 065
  16. ZOLOFT [Concomitant]
     Route: 065
  17. SYSTANE [Concomitant]
     Route: 065
  18. XOPENEX [Concomitant]
     Route: 065
  19. ADVAIR DISKUS 100/50 [Suspect]
     Indication: ASTHMA
     Dates: start: 20070601, end: 20070816
  20. ADVAIR DISKUS 100/50 [Suspect]
     Indication: CHRONIC OBSTRUCTIVE PULMONARY DISEASE
     Dates: start: 20070601, end: 20070816

REACTIONS (4)
  - ASTHMA [None]
  - DRUG INEFFECTIVE [None]
  - THROAT IRRITATION [None]
  - VOCAL CORD DISORDER [None]
